APPROVED DRUG PRODUCT: NICOTINE POLACRILEX
Active Ingredient: NICOTINE POLACRILEX
Strength: EQ 2MG BASE
Dosage Form/Route: GUM, CHEWING;BUCCAL
Application: A078325 | Product #001
Applicant: PERRIGO R AND D CO
Approved: Oct 30, 2006 | RLD: No | RS: No | Type: OTC